FAERS Safety Report 4483640-3 (Version None)
Quarter: 2004Q4

REPORT INFORMATION
  Report Type: 
  Country: None (occurrence: None)
  Receive Date: 20041020
  Receipt Date: 20041004
  Transmission Date: 20050328
  Serious: Yes (Death, Hospitalization)
  Sender: FDA-Public Use
  Company Number: 205820

PATIENT
  Age: 62 Year
  Sex: Female
  Weight: 83.4619 kg

DRUGS (18)
  1. AVONEX [Suspect]
     Indication: MULTIPLE SCLEROSIS
     Dosage: 30 MCG QW IM
     Route: 030
     Dates: start: 20020101, end: 20030101
  2. AVONEX [Suspect]
     Indication: MULTIPLE SCLEROSIS
     Dosage: 30 MCG QW IM
     Route: 030
     Dates: start: 20030101, end: 20040901
  3. LEVOXYL [Concomitant]
  4. ALLOPURINOL [Concomitant]
  5. TRICOR [Concomitant]
  6. BACLOFEN [Concomitant]
  7. GLIPIZIDE [Concomitant]
  8. DETROL - SLOW RELEASE [Concomitant]
  9. ACTONEL [Concomitant]
  10. ASPIRIN [Concomitant]
  11. PROTONIX [Concomitant]
  12. ALLEGRA-D [Concomitant]
  13. FUROSEMIDE [Concomitant]
  14. PROVIGIL [Concomitant]
  15. TOPAMAX [Concomitant]
  16. FLOMAX [Concomitant]
  17. MIRALAX [Concomitant]
  18. POTASSIUM [Concomitant]

REACTIONS (3)
  - BLOOD TEST ABNORMAL [None]
  - INTESTINAL OBSTRUCTION [None]
  - PNEUMONIA [None]
